FAERS Safety Report 6287489-0 (Version None)
Quarter: 2009Q3

REPORT INFORMATION
  Report Type: 
  Country: None (occurrence: None)
  Receive Date: 20090727
  Receipt Date: 20090709
  Transmission Date: 20100115
  Serious: Yes (Disabling)
  Sender: FDA-Public Use
  Company Number: APP200900177

PATIENT
  Age: 32 Year
  Sex: Male

DRUGS (7)
  1. SENSORCAINE [Suspect]
     Indication: MUSCULOSKELETAL PAIN
     Dosage: 275 ML, CONTINUOUS VIA PUMP, INTRA-ARTICULAR
     Route: 014
     Dates: start: 20050615
  2. DONJOY PAIN PUMP [Suspect]
     Indication: MUSCULOSKELETAL PAIN
     Dates: start: 20050615
  3. LIDOCAINE AND EPINEPHRINE [Suspect]
     Indication: THERAPEUTIC PROCEDURE
     Dosage: 10 ML, JOINT INSUFFLATION
  4. MARCAINE WITH EPINEPHRINE (MARCAINE WITH EPINEPHERINE) [Suspect]
     Indication: MUSCULOSKELETAL PAIN
     Dosage: INTRA-ARTICULAR
     Route: 014
     Dates: start: 20050615
  5. ANTIBIOTIC (CHLORAMPHENICOL) [Concomitant]
  6. LORATADINE [Concomitant]
  7. ACYCLOVIR [Concomitant]

REACTIONS (7)
  - ARTHRITIS [None]
  - CHONDROLYSIS [None]
  - JOINT EFFUSION [None]
  - MUSCULOSKELETAL PAIN [None]
  - MUSCULOSKELETAL STIFFNESS [None]
  - SCAR [None]
  - TENDERNESS [None]
